FAERS Safety Report 5833649-X (Version None)
Quarter: 2008Q3

REPORT INFORMATION
  Report Type: 
  Country: None (occurrence: None)
  Receive Date: 20080801
  Receipt Date: 20080724
  Transmission Date: 20090109
  Serious: Yes (Death)
  Sender: FDA-Public Use
  Company Number: 163-20785-08070488

PATIENT
  Age: 34 Year
  Sex: Male

DRUGS (1)
  1. THALOMID [Suspect]
     Indication: MUCOSAL INFLAMMATION
     Dosage: 200 MG, 2 IN 1 D, ORAL
     Route: 048
     Dates: start: 20080120, end: 20080210

REACTIONS (3)
  - LYMPHOMA [None]
  - MALIGNANT NEOPLASM PROGRESSION [None]
  - METASTASIS [None]
